FAERS Safety Report 6864310-0 (Version None)
Quarter: 2010Q3

REPORT INFORMATION
  Report Type: 
  Country: None (occurrence: None)
  Receive Date: 20100721
  Receipt Date: 20080627
  Transmission Date: 20110219
  Serious: No
  Sender: FDA-Public Use
  Company Number: US-PFIZER INC-2008023880

PATIENT
  Sex: Female

DRUGS (1)
  1. CHANTIX [Suspect]
     Indication: SMOKING CESSATION THERAPY
     Dates: start: 20071101

REACTIONS (8)
  - ANXIETY [None]
  - APATHY [None]
  - ARTHRALGIA [None]
  - COGNITIVE DISORDER [None]
  - DRUG INEFFECTIVE [None]
  - HEADACHE [None]
  - SLEEP DISORDER [None]
  - STRESS [None]
